FAERS Safety Report 20728538 (Version 1)
Quarter: 2022Q2

REPORT INFORMATION
  Report Type: Spontaneous
  Country: CN (occurrence: CN)
  Receive Date: 20220420
  Receipt Date: 20220420
  Transmission Date: 20220720
  Serious: Yes (Hospitalization)
  Sender: FDA-Public Use
  Company Number: CN-BoehringerIngelheim-2022-BI-165958

PATIENT
  Age: 73 Year
  Sex: Male
  Weight: 77.5 kg

DRUGS (1)
  1. PRAMIPEXOLE [Suspect]
     Active Substance: PRAMIPEXOLE
     Indication: Parkinson^s disease
     Dosage: UNIT DOSE: 0.25MG  IN THE MORNING AND AT NOON, AND 0.375MG  IN THE EVENING
     Route: 048
     Dates: start: 2020

REACTIONS (2)
  - Parkinson^s disease [Unknown]
  - Product taste abnormal [Unknown]

NARRATIVE: CASE EVENT DATE: 20210701
